FAERS Safety Report 5820307-0 (Version None)
Quarter: 2008Q3

REPORT INFORMATION
  Report Type: 
  Country: None (occurrence: None)
  Receive Date: 20080724
  Receipt Date: 20070605
  Transmission Date: 20090109
  Serious: No
  Sender: FDA-Public Use
  Company Number: A0654242A

PATIENT
  Age: 58 Year
  Sex: Female

DRUGS (7)
  1. AVANDIA [Suspect]
     Dosage: 5MG TWICE PER DAY
     Route: 048
     Dates: start: 20060101, end: 20070603
  2. METFORMIN [Concomitant]
  3. GLYBURIDE [Concomitant]
  4. SINGULAIR [Concomitant]
  5. ALBUTEROL [Concomitant]
  6. ENALAPRIL MALEATE [Concomitant]
  7. HYDROCHLOROTHIAZIDE [Concomitant]

REACTIONS (2)
  - FATIGUE [None]
  - FLUID RETENTION [None]
